FAERS Safety Report 20732625 (Version 1)
Quarter: 2022Q2

REPORT INFORMATION
  Report Type: Spontaneous
  Country: US (occurrence: US)
  Receive Date: 20220420
  Receipt Date: 20220420
  Transmission Date: 20220721
  Serious: Yes (Other)
  Sender: FDA-Public Use
  Company Number: US-AMERICAN REGENT INC-2022001050

PATIENT
  Age: 13 Year
  Sex: Female
  Weight: 53 kg

DRUGS (12)
  1. LEVETIRACETAM [Suspect]
     Active Substance: LEVETIRACETAM
     Indication: Generalised tonic-clonic seizure
     Dosage: 35 MG/KG, SINGLE
     Route: 042
  2. LEVETIRACETAM [Suspect]
     Active Substance: LEVETIRACETAM
     Dosage: 10 MG/KG, BID
     Route: 065
  3. LEVETIRACETAM [Suspect]
     Active Substance: LEVETIRACETAM
     Dosage: 30 MG/KG
     Route: 042
  4. LORAZEPAM [Suspect]
     Active Substance: LORAZEPAM
     Indication: Generalised tonic-clonic seizure
     Dosage: 0.04 MG/KG, SINGLE
     Route: 065
  5. LORAZEPAM [Suspect]
     Active Substance: LORAZEPAM
     Dosage: 0.1 MG/KG
     Route: 042
  6. FUROSEMIDE [Concomitant]
     Active Substance: FUROSEMIDE
     Indication: Oliguria
     Dosage: 40 MILLIGRAM
     Route: 042
  7. FUROSEMIDE [Concomitant]
     Active Substance: FUROSEMIDE
     Indication: Blood urea increased
     Dosage: 80 MILLIGRAM, SINGLE
     Route: 042
  8. FUROSEMIDE [Concomitant]
     Active Substance: FUROSEMIDE
     Indication: Blood creatinine increased
  9. ECULIZUMAB [Concomitant]
     Active Substance: ECULIZUMAB
     Indication: Neurological symptom
     Dosage: 900 MG (15.5 MG/KG) OVER 4 HOURS AFTER HEMODIALYSIS
     Route: 042
  10. ECULIZUMAB [Concomitant]
     Active Substance: ECULIZUMAB
     Indication: Gastroenteritis Escherichia coli
     Dosage: 900 MG (15.5 MG/KG) OVER 4 HOURS AFTER HEMODIALYSIS
     Route: 042
  11. ECULIZUMAB [Concomitant]
     Active Substance: ECULIZUMAB
     Indication: Haemolytic uraemic syndrome
  12. PENICILLIN [Concomitant]
     Active Substance: PENICILLIN
     Indication: Prophylaxis
     Dosage: UNK
     Route: 065

REACTIONS (2)
  - Generalised tonic-clonic seizure [Recovered/Resolved]
  - Drug ineffective [Recovered/Resolved]
